FAERS Safety Report 5480968-5 (Version None)
Quarter: 2007Q4

REPORT INFORMATION
  Report Type: 
  Country: None (occurrence: None)
  Receive Date: 20071009
  Receipt Date: 20070926
  Transmission Date: 20080405
  Serious: Yes (Hospitalization, Other)
  Sender: FDA-Public Use
  Company Number: US-AMGEN-US244987

PATIENT
  Sex: Female

DRUGS (7)
  1. EPOGEN [Suspect]
     Indication: DIALYSIS
     Dates: end: 20070913
  2. COLCHICINE [Concomitant]
  3. PHOSLO [Concomitant]
  4. TRAMADOL HCL [Concomitant]
  5. CARTIA XT [Concomitant]
  6. DIOVAN [Concomitant]
  7. SODIUM BICARBONATE [Concomitant]

REACTIONS (3)
  - ANAEMIA [None]
  - APLASIA PURE RED CELL [None]
  - SHUNT INFECTION [None]
